FAERS Safety Report 10837959 (Version 1)
Quarter: 2015Q1

REPORT INFORMATION
  Report Type: Spontaneous
  Country: US (occurrence: US)
  Receive Date: 20150219
  Receipt Date: 20150219
  Transmission Date: 20150721
  Serious: Yes (Hospitalization, Other)
  Sender: FDA-Public Use
  Company Number: US-GLAXOSMITHKLINE-US2015GSK022655

PATIENT
  Age: 55 Year
  Sex: Female

DRUGS (2)
  1. BENLYSTA [Suspect]
     Active Substance: BELIMUMAB
     Indication: CUTANEOUS LUPUS ERYTHEMATOSUS
     Dosage: UNK, CYC
     Route: 065
  2. CELLCEPT [Concomitant]
     Active Substance: MYCOPHENOLATE MOFETIL\MYCOPHENOLATE MOFETIL HYDROCHLORIDE

REACTIONS (7)
  - Neutrophil count decreased [Recovered/Resolved]
  - Neuropathy peripheral [Not Recovered/Not Resolved]
  - Pneumonia [Recovered/Resolved]
  - Foot operation [Recovering/Resolving]
  - Swelling [Unknown]
  - Gait disturbance [Not Recovered/Not Resolved]
  - Dysphonia [Recovering/Resolving]

NARRATIVE: CASE EVENT DATE: 201501
